FAERS Safety Report 9304144 (Version 1)
Quarter: 2013Q2

REPORT INFORMATION
  Report Type: Spontaneous
  Country: JP (occurrence: JP)
  Receive Date: 20130522
  Receipt Date: 20130530
  Transmission Date: 20140414
  Serious: Yes (Hospitalization, Other)
  Sender: FDA-Public Use
  Company Number: JP-PFIZER INC-2013150429

PATIENT
  Sex: 0

DRUGS (12)
  1. QUETIAPINE FUMARATE [Suspect]
     Dosage: UNK
     Route: 064
  2. HALOPERIDOL [Suspect]
     Dosage: 6 MG/DAY
     Route: 064
  3. OLANZAPINE [Suspect]
     Dosage: UNK
     Route: 064
  4. RISPERIDONE [Suspect]
     Dosage: 1 MG/DAY
     Route: 064
  5. CONTOMIN [Suspect]
     Dosage: UNK
     Route: 064
  6. PARULEON [Suspect]
     Dosage: 0.5 MG/DAY
     Route: 064
  7. BROMAZEPAM [Concomitant]
     Dosage: 10 MG/DAY
     Route: 064
  8. FLUNITRAZEPAM [Concomitant]
     Dosage: 4 MG/DAY
     Route: 064
  9. VALPROATE [Concomitant]
     Dosage: 800 MG/DAY
     Route: 064
  10. CARBAMAZEPINE [Concomitant]
     Dosage: 600 MG/DAY
     Route: 064
  11. BIPERIDEN [Concomitant]
     Dosage: 2 MG/DAY
     Route: 064
  12. CLOMIPRAMINE [Concomitant]
     Dosage: 25 MG/DAY
     Route: 064

REACTIONS (8)
  - Maternal exposure during pregnancy [Unknown]
  - Drug withdrawal syndrome neonatal [Recovered/Resolved with Sequelae]
  - Convulsion neonatal [Recovered/Resolved]
  - Blood creatine phosphokinase increased [Unknown]
  - Nervous system disorder [Unknown]
  - Hyperprolactinaemia [Unknown]
  - Hepatic function abnormal [Unknown]
  - Developmental delay [Unknown]
